FAERS Safety Report 13909469 (Version 1)
Quarter: 2017Q3

REPORT INFORMATION
  Report Type: Spontaneous
  Country: RO (occurrence: RO)
  Receive Date: 20170828
  Receipt Date: 20170828
  Transmission Date: 20171127
  Serious: Yes (Other)
  Sender: FDA-Public Use
  Company Number: RO-ROCHE-1982206

PATIENT
  Sex: Female

DRUGS (1)
  1. CAPECITABINE. [Suspect]
     Active Substance: CAPECITABINE
     Indication: BREAST CANCER METASTATIC
     Route: 065
     Dates: start: 201402, end: 201411

REACTIONS (4)
  - Vertebroplasty [Unknown]
  - Palmar-plantar erythrodysaesthesia syndrome [Unknown]
  - Carbohydrate antigen 15-3 increased [Unknown]
  - Pain [Unknown]
